FAERS Safety Report 7580592 (Version 2)
Quarter: 2019Q1

REPORT INFORMATION
  Report Type: Spontaneous
  Country: GB (occurrence: GB)
  Receive Date: 20100910
  Receipt Date: 20190201
  Transmission Date: 20190418
  Serious: Yes (Life-Threatening, Other)
  Sender: FDA-Public Use
  Company Number: GB-PFIZER INC-2010109937

PATIENT
  Age: 60 Year
  Sex: Female

DRUGS (2)
  1. ELLESTE-SOLO [Concomitant]
     Indication: HORMONE REPLACEMENT THERAPY
     Dosage: 2 DF, 1X/DAY
     Route: 048
     Dates: start: 2008
  2. LYRICA [Suspect]
     Active Substance: PREGABALIN
     Dosage: 75 MG, 1X/DAY
     Route: 048
     Dates: start: 20100428, end: 20100428

REACTIONS (1)
  - Circulatory collapse [Recovered/Resolved]

NARRATIVE: CASE EVENT DATE: 20100428
